FAERS Safety Report 16394385 (Version 4)
Quarter: 2019Q3

REPORT INFORMATION
  Report Type: Spontaneous
  Country: JP (occurrence: JP)
  Receive Date: 20190605
  Receipt Date: 20190708
  Transmission Date: 20191004
  Serious: Yes (Other)
  Sender: FDA-Public Use
  Company Number: JP-PFIZER INC-2019235024

PATIENT
  Age: 30 Year
  Sex: Male

DRUGS (1)
  1. MEROPENEM. [Suspect]
     Active Substance: MEROPENEM
     Indication: PYREXIA
     Dosage: UNK
     Route: 041

REACTIONS (2)
  - Thrombophlebitis [Recovered/Resolved]
  - Device related infection [Recovered/Resolved]
